FAERS Safety Report 21821585 (Version 1)
Quarter: 2023Q1

REPORT INFORMATION
  Report Type: Spontaneous
  Country: US (occurrence: US)
  Receive Date: 20230105
  Receipt Date: 20230105
  Transmission Date: 20230417
  Serious: No
  Sender: FDA-Public Use
  Company Number: None

PATIENT

DRUGS (3)
  1. DEXTROAMPHET SACCHARAT, AMPHET ASPARTATE, DEXTROAMPHET SULFATE AND AMP [Suspect]
     Active Substance: AMPHETAMINE ASPARTATE\AMPHETAMINE SULFATE\DEXTROAMPHETAMINE SACCHARATE\DEXTROAMPHETAMINE SULFATE
     Indication: Attention deficit hyperactivity disorder
     Route: 065
  2. BUSPIRONE [Concomitant]
     Active Substance: BUSPIRONE HYDROCHLORIDE
     Indication: Anxiety
     Route: 065
  3. GABAPENTIN [Concomitant]
     Active Substance: GABAPENTIN
     Indication: Anxiety
     Route: 065

REACTIONS (11)
  - Feeling abnormal [Unknown]
  - Speech disorder [Unknown]
  - Dissociation [Recovered/Resolved]
  - Myalgia [Unknown]
  - Mental impairment [Unknown]
  - Insomnia [Unknown]
  - Apathy [Unknown]
  - Impaired work ability [Unknown]
  - Muscle tightness [Unknown]
  - Irritability [Unknown]
  - Product substitution issue [Unknown]
